FAERS Safety Report 14665925 (Version 1)
Quarter: 2018Q1

REPORT INFORMATION
  Report Type: Spontaneous
  Country: US (occurrence: US)
  Receive Date: 20180320
  Receipt Date: 20180320
  Transmission Date: 20180509
  Serious: Yes (Hospitalization)
  Sender: FDA-Public Use
  Company Number: None

PATIENT
  Sex: Female

DRUGS (9)
  1. HUMIRA [Suspect]
     Active Substance: ADALIMUMAB
     Indication: PSORIATIC ARTHROPATHY
     Dosage: ?          OTHER FREQUENCY:EVERY 2 WEEKS;?
     Route: 058
     Dates: start: 20151218
  2. DULOXETINE 60MG [Concomitant]
     Active Substance: DULOXETINE
  3. ADVIL 200MG [Concomitant]
  4. MULTIVITAMIN [Concomitant]
     Active Substance: VITAMINS
  5. TRAZODONE [Concomitant]
     Active Substance: TRAZODONE HYDROCHLORIDE
  6. ESTRADIOL 0.5MG [Concomitant]
  7. LOSARTAN 25MG [Concomitant]
     Active Substance: LOSARTAN
  8. OMEPRAZOLE 20MG [Concomitant]
     Active Substance: OMEPRAZOLE
  9. REQUIP 0.5MG [Concomitant]

REACTIONS (4)
  - Pneumonia [None]
  - Pleural effusion [None]
  - Drug dose omission [None]
  - Depression [None]
